FAERS Safety Report 8287125-8 (Version None)
Quarter: 2012Q2

REPORT INFORMATION
  Report Type: 
  Country: None (occurrence: None)
  Receive Date: 20120416
  Receipt Date: 20120405
  Transmission Date: 20120825
  Serious: Yes (Hospitalization)
  Sender: FDA-Public Use
  Company Number: FR-ROCHE-1057637

PATIENT
  Sex: Male

DRUGS (11)
  1. PEGASYS [Suspect]
     Indication: HEPATITIS C
     Route: 058
     Dates: start: 20111129, end: 20120305
  2. COPEGUS [Suspect]
     Indication: HEPATITIS C
     Route: 048
     Dates: start: 20111129, end: 20120305
  3. CRESTOR [Concomitant]
  4. VICTRELIS [Suspect]
     Indication: HEPATITIS C
     Route: 048
     Dates: start: 20120108, end: 20120305
  5. POLARAMINE [Concomitant]
     Dates: start: 20120301, end: 20120304
  6. SECTRAL [Concomitant]
  7. PERINDOPRIL ERBUMINE [Concomitant]
  8. OFLOXACIN [Suspect]
     Indication: PROSTATITIS
     Route: 048
     Dates: start: 20120129, end: 20120229
  9. ASPIRIN [Concomitant]
  10. ACETAMINOPHEN [Concomitant]
  11. ATARAX [Concomitant]
     Dates: start: 20120301, end: 20120304

REACTIONS (4)
  - TOXIC SKIN ERUPTION [None]
  - NEUTROPENIA [None]
  - EOSINOPHILIA [None]
  - LYMPHOCYTE COUNT DECREASED [None]
